FAERS Safety Report 17934230 (Version 1)
Quarter: 2020Q2

REPORT INFORMATION
  Report Type: Spontaneous
  Country: US (occurrence: US)
  Receive Date: 20200624
  Receipt Date: 20200624
  Transmission Date: 20200714
  Serious: Yes (Other)
  Sender: FDA-Public Use
  Company Number: US-009507513-2006USA008300

PATIENT
  Sex: Female

DRUGS (2)
  1. KEYTRUDA [Suspect]
     Active Substance: PEMBROLIZUMAB
     Indication: MALIGNANT MELANOMA STAGE III
     Dosage: 2 MILLIGRAM/KILOGRAM, EVERY 21 DAYS
  2. TALIMOGENE LAHERPAREPVEC [Concomitant]
     Active Substance: TALIMOGENE LAHERPAREPVEC
     Dosage: UNK

REACTIONS (7)
  - Immune-mediated enterocolitis [Unknown]
  - Uveitis [Unknown]
  - C-reactive protein increased [Unknown]
  - Iridocyclitis [Recovered/Resolved]
  - Neuropathy peripheral [Unknown]
  - Red blood cell sedimentation rate increased [Unknown]
  - Pyrexia [Unknown]
